FAERS Safety Report 7797591-X (Version None)
Quarter: 2011Q4

REPORT INFORMATION
  Report Type: 
  Country: None (occurrence: None)
  Receive Date: 20111003
  Receipt Date: 20101001
  Transmission Date: 20120403
  Serious: No
  Sender: FDA-Public Use
  Company Number: AEUSA2010000379

PATIENT
  Sex: Female

DRUGS (1)
  1. HYPERRHO [Suspect]
     Indication: PROPHYLAXIS AGAINST RH ISOIMMUNISATION
     Dosage: 250 IU; 1X;IM
     Route: 030
     Dates: start: 20100930, end: 20100930

REACTIONS (2)
  - NO ADVERSE EVENT [None]
  - INCORRECT PRODUCT STORAGE [None]
